FAERS Safety Report 7946583-6 (Version None)
Quarter: 2011Q4

REPORT INFORMATION
  Report Type: 
  Country: None (occurrence: None)
  Receive Date: 20111129
  Receipt Date: 20111121
  Transmission Date: 20120403
  Serious: Yes (Hospitalization, Other)
  Sender: FDA-Public Use
  Company Number: US-AMGEN-USASP2011061606

PATIENT
  Age: 50 Year
  Sex: Female

DRUGS (2)
  1. ENBREL [Suspect]
     Indication: ANKYLOSING SPONDYLITIS
     Dosage: 50 MG, QWK
     Dates: start: 20040916
  2. ENBREL [Suspect]
     Indication: OSTEOARTHRITIS

REACTIONS (13)
  - OSTEOARTHRITIS [None]
  - DRUG EFFECT DECREASED [None]
  - DENTAL CARIES [None]
  - DYSPHAGIA [None]
  - CATARACT [None]
  - NECK PAIN [None]
  - MUSCULOSKELETAL CHEST PAIN [None]
  - FEELING ABNORMAL [None]
  - BACK PAIN [None]
  - OESOPHAGEAL DISORDER [None]
  - DYSPNOEA [None]
  - MENTAL IMPAIRMENT [None]
  - BRONCHITIS [None]
